FAERS Safety Report 9915072 (Version 1)
Quarter: 2014Q1

REPORT INFORMATION
  Report Type: Report from Study
  Country: BE (occurrence: BE)
  Receive Date: 20140220
  Receipt Date: 20140220
  Transmission Date: 20141002
  Serious: Yes (Hospitalization)
  Sender: FDA-Public Use
  Company Number: BE-ASTRAZENECA-2014SE11166

PATIENT
  Age: 72 Year
  Sex: Male

DRUGS (3)
  1. TICAGRELOR [Suspect]
     Indication: ACUTE CORONARY SYNDROME
     Route: 048
     Dates: start: 20130828
  2. TICAGRELOR [Suspect]
     Indication: ACUTE CORONARY SYNDROME
     Dosage: 2X90MG
     Route: 048
  3. ACETYLSALICYLIC ACID [Suspect]
     Indication: ACUTE CORONARY SYNDROME
     Route: 048

REACTIONS (1)
  - Angina pectoris [Not Recovered/Not Resolved]
